FAERS Safety Report 15806855 (Version 1)
Quarter: 2019Q1

REPORT INFORMATION
  Report Type: Spontaneous
  Country: US (occurrence: US)
  Receive Date: 20190107
  Receipt Date: 20190107
  Transmission Date: 20190417
  Serious: No
  Sender: FDA-Public Use
  Company Number: None

PATIENT

DRUGS (2)
  1. METOCLOPRAMIDE METOCLOPRAMIDE [Suspect]
     Active Substance: METOCLOPRAMIDE
  2. AMIKACIN SULFATE AMIKACIN [Suspect]
     Active Substance: AMIKACIN SULFATE

REACTIONS (2)
  - Intercepted product dispensing error [None]
  - Product appearance confusion [None]
